FAERS Safety Report 14701352 (Version 1)
Quarter: 2018Q1

REPORT INFORMATION
  Report Type: Spontaneous
  Country: CA (occurrence: CA)
  Receive Date: 20180330
  Receipt Date: 20180330
  Transmission Date: 20180509
  Serious: Yes (Hospitalization)
  Sender: FDA-Public Use
  Company Number: CA-IMPAX LABORATORIES, INC-2018-IPXL-00955

PATIENT
  Age: 32 Year
  Sex: Female

DRUGS (3)
  1. CABERGOLINE. [Suspect]
     Active Substance: CABERGOLINE
     Dosage: 0.25 MG, 2 /WEEK
     Route: 048
  2. CABERGOLINE. [Suspect]
     Active Substance: CABERGOLINE
     Dosage: 0.25 MG, 1 /WEEK
     Route: 048
  3. CABERGOLINE. [Suspect]
     Active Substance: CABERGOLINE
     Indication: PROLACTIN-PRODUCING PITUITARY TUMOUR
     Dosage: 0.25 MG, 1 /WEEK
     Route: 048

REACTIONS (1)
  - Bipolar disorder [Recovered/Resolved]
